FAERS Safety Report 5148597-0 (Version None)
Quarter: 2006Q4

REPORT INFORMATION
  Report Type: 
  Country: None (occurrence: None)
  Receive Date: 20061107
  Receipt Date: 20061025
  Transmission Date: 20070319
  Serious: Yes (Death, Life-Threatening)
  Sender: FDA-Public Use
  Company Number: 2006S1000235

PATIENT
  Age: 58 Year
  Sex: Female
  Weight: 174 kg

DRUGS (16)
  1. CUBICIN [Suspect]
     Indication: JOINT ABSCESS
     Dates: start: 20060101, end: 20060101
  2. CUBICIN [Suspect]
     Indication: STAPHYLOCOCCAL ABSCESS
     Dates: start: 20060101, end: 20060101
  3. VANCOMYCIN [Concomitant]
  4. RIFAMPIN [Concomitant]
  5. LOSARTAN POSTASSIUM [Concomitant]
  6. FUROSEMIDE [Concomitant]
  7. PIPERACILLIN SODIUM/TAZOBACTAM SODIUM PANTOPRAZOLE [Concomitant]
  8. NEURONTIN [Concomitant]
  9. RISPERDAL [Concomitant]
  10. COMBIVENT [Concomitant]
  11. ALDACTONE [Concomitant]
  12. LACTULOSE [Concomitant]
  13. ASCORBIC ACID [Concomitant]
  14. M.V.I. [Concomitant]
  15. ARIPIPRAZOLE [Concomitant]
  16. PANTOPRAZOLE SODIUM [Concomitant]

REACTIONS (13)
  - BLOOD ALBUMIN DECREASED [None]
  - BLOOD BILIRUBIN INCREASED [None]
  - BLOOD CALCIUM DECREASED [None]
  - BLOOD GLUCOSE INCREASED [None]
  - BLOOD SODIUM DECREASED [None]
  - HAEMATOCRIT DECREASED [None]
  - HAEMOGLOBIN DECREASED [None]
  - HYPOTENSION [None]
  - INCOHERENT [None]
  - INTERNATIONAL NORMALISED RATIO DECREASED [None]
  - LETHARGY [None]
  - RENAL FAILURE ACUTE [None]
  - RENAL TUBULAR NECROSIS [None]
